FAERS Safety Report 17689570 (Version 13)
Quarter: 2024Q1

REPORT INFORMATION
  Report Type: Report from Study
  Country: CA (occurrence: CA)
  Receive Date: 20200421
  Receipt Date: 20240312
  Transmission Date: 20240410
  Serious: Yes (Other)
  Sender: FDA-Public Use
  Company Number: PHHY2018CA112297

PATIENT
  Sex: Male

DRUGS (29)
  1. XOLAIR [Suspect]
     Active Substance: OMALIZUMAB
     Indication: Chronic spontaneous urticaria
     Dosage: 300 MG, (EVERY 8 WEEKS)
     Route: 058
     Dates: start: 20170317, end: 20170825
  2. XOLAIR [Suspect]
     Active Substance: OMALIZUMAB
     Dosage: 300 MG, (EVERY 8 WEEKS)
     Route: 058
     Dates: start: 20180605, end: 20181123
  3. XOLAIR [Suspect]
     Active Substance: OMALIZUMAB
     Dosage: 300 MG, (EVERY 8 WEEKS)
     Route: 058
     Dates: start: 20200429
  4. XOLAIR [Suspect]
     Active Substance: OMALIZUMAB
     Dosage: 300 MG (EVERY 6 WEEKS)
     Route: 058
  5. CYCLOSPORINE [Suspect]
     Active Substance: CYCLOSPORINE
     Indication: Product used for unknown indication
     Dosage: 100 MG, QD
     Route: 065
     Dates: start: 201806
  6. CYCLOSPORINE [Suspect]
     Active Substance: CYCLOSPORINE
     Dosage: 1 DOSAGE FORM, QD (200 MG)
     Route: 048
     Dates: start: 202003
  7. CYCLOSPORINE [Suspect]
     Active Substance: CYCLOSPORINE
     Dosage: 1 DF, QD
     Route: 048
  8. MONTELUKAST SODIUM [Suspect]
     Active Substance: MONTELUKAST SODIUM
     Indication: Product used for unknown indication
     Dosage: 10 MG, QD
     Route: 048
     Dates: start: 201501
  9. OMALIZUMAB [Suspect]
     Active Substance: OMALIZUMAB
     Indication: Chronic spontaneous urticaria
     Dosage: 300 MG
     Route: 058
  10. OMALIZUMAB [Suspect]
     Active Substance: OMALIZUMAB
     Dosage: 300 MG
     Route: 058
  11. OMALIZUMAB [Suspect]
     Active Substance: OMALIZUMAB
     Dosage: 300 MG
     Route: 058
  12. OMALIZUMAB [Suspect]
     Active Substance: OMALIZUMAB
     Dosage: 300 MG
     Route: 058
  13. PREDNISONE [Suspect]
     Active Substance: PREDNISONE
     Indication: Chronic spontaneous urticaria
     Dosage: 1 DOSAGE FORM, QD
     Route: 048
     Dates: start: 201711
  14. PREDNISONE [Suspect]
     Active Substance: PREDNISONE
     Dosage: 50 MG, QD
     Route: 048
  15. ALLEGRA [Concomitant]
     Active Substance: FEXOFENADINE HYDROCHLORIDE
     Indication: Chronic spontaneous urticaria
     Dosage: 2 DOSAGE FORM, BID
     Route: 048
     Dates: start: 2016
  16. ALLEGRA [Concomitant]
     Active Substance: FEXOFENADINE HYDROCHLORIDE
     Dosage: 4 DF, QD
     Route: 048
  17. RUPATADINE FUMARATE [Concomitant]
     Active Substance: RUPATADINE FUMARATE
     Indication: Product used for unknown indication
     Dosage: 2 DF, QD
     Route: 048
  18. RUPATADINE FUMARATE [Concomitant]
     Active Substance: RUPATADINE FUMARATE
     Dosage: 1 DF, BID
     Route: 048
  19. BENADRYL [Concomitant]
     Active Substance: DIPHENHYDRAMINE HYDROCHLORIDE
     Indication: Chronic spontaneous urticaria
     Dosage: UNK, PRN
     Route: 048
     Dates: start: 2016
  20. BENADRYL [Concomitant]
     Active Substance: DIPHENHYDRAMINE HYDROCHLORIDE
     Dosage: UNK (STRENGTH: 25 MG)
     Route: 065
  21. BENADRYL [Concomitant]
     Active Substance: DIPHENHYDRAMINE HYDROCHLORIDE
     Dosage: UNK (STRENGTH: 2 %)
     Route: 065
  22. CLARITIN [Concomitant]
     Active Substance: LORATADINE
     Indication: Chronic spontaneous urticaria
     Dosage: 1 DOSAGE FORM, BID
     Route: 065
     Dates: end: 201710
  23. CLARITIN [Concomitant]
     Active Substance: LORATADINE
     Dosage: 2 DF, QD
     Route: 065
  24. REACTINE [Concomitant]
     Indication: Chronic spontaneous urticaria
     Dosage: 40-60 MG
     Route: 065
     Dates: start: 2012
  25. REACTINE [Concomitant]
     Dosage: UNK (STRENGTH: 20 MG)
     Route: 065
  26. REACTINE [Concomitant]
     Dosage: UNK (STRENGTH: 10 MG)
     Route: 065
  27. REACTINE [Concomitant]
     Dosage: UNK (STRENGTH: UNK)
     Route: 065
  28. REACTINE [Concomitant]
     Dosage: UNK (STRENGTH: 5 MG)
     Route: 065
  29. RUPATADINE FUMARATE [Concomitant]
     Active Substance: RUPATADINE FUMARATE
     Indication: Chronic spontaneous urticaria
     Dosage: 1 DOSAGE FORM, BID
     Route: 048
     Dates: start: 201806

REACTIONS (8)
  - Secondary immunodeficiency [Recovering/Resolving]
  - Angioedema [Recovering/Resolving]
  - Pruritus [Recovering/Resolving]
  - Quality of life decreased [Recovering/Resolving]
  - Urticaria [Recovering/Resolving]
  - Weight increased [Recovering/Resolving]
  - Lacrimation increased [Unknown]
  - Off label use [Unknown]

NARRATIVE: CASE EVENT DATE: 20210129
